FAERS Safety Report 13228279 (Version 1)
Quarter: 2017Q1

REPORT INFORMATION
  Report Type: Spontaneous
  Country: US (occurrence: US)
  Receive Date: 20170213
  Receipt Date: 20170213
  Transmission Date: 20170428
  Serious: No
  Sender: FDA-Public Use
  Company Number: US-ROCHE-1852813

PATIENT
  Sex: Male

DRUGS (1)
  1. XOLAIR [Suspect]
     Active Substance: OMALIZUMAB
     Indication: ASTHMA
     Route: 058
     Dates: start: 201610

REACTIONS (7)
  - Headache [Unknown]
  - Ear pain [Unknown]
  - Rash [Unknown]
  - Epistaxis [Unknown]
  - Abdominal pain [Unknown]
  - Nausea [Unknown]
  - Pruritus [Unknown]
